FAERS Safety Report 9236922 (Version 3)
Quarter: 2013Q3

REPORT INFORMATION
  Report Type: Spontaneous
  Country: FR (occurrence: None)
  Receive Date: 20130415
  Receipt Date: 20130808
  Transmission Date: 20140515
  Serious: Yes (Other)
  Sender: FDA-Public Use
  Company Number: SYM-2013-02501

PATIENT
  Age: 38 Year
  Sex: Male

DRUGS (17)
  1. FLAGYL [Suspect]
     Indication: PRODUCT USED FOR UNKNOWN INDICATION
     Route: 042
     Dates: start: 20130211, end: 20130218
  2. DAUNORUBICINE [Suspect]
     Indication: PRODUCT USED FOR UNKNOWN INDICATION
     Route: 042
     Dates: start: 20130116, end: 20130118
  3. AMBISOME [Suspect]
     Indication: PRODUCT USED FOR UNKNOWN INDICATION
     Route: 042
     Dates: start: 20130203, end: 20130214
  4. ASPARAGINASE [Suspect]
     Indication: PRODUCT USED FOR UNKNOWN INDICATION
     Route: 042
     Dates: start: 20130123, end: 20130208
  5. FORTUM [Suspect]
     Indication: PRODUCT USED FOR UNKNOWN INDICATION
     Route: 042
     Dates: start: 20130129, end: 20130217
  6. CYCLOPHOSPHAMIDE (CYCLOPHOSPHAMIDE) (CYCLOPHOSPHAMIDE) [Suspect]
     Indication: PRODUCT USED FOR UNKNOWN INDICATION
     Route: 042
     Dates: start: 20120116, end: 20130130
  7. VINCRISTINE SULFATE [Concomitant]
     Indication: PRODUCT USED FOR UNKNOWN INDICATION
  8. PREDNISONE (PREDNISONE) (PREDNISONE) [Concomitant]
  9. LEVOTHYROX (LEVOTHYROXINE SODIUM) (LEVOTHYROXINE SODIUM) [Concomitant]
  10. DEPAKOTE (VALPROATE SEMISODIUM) (VALPROATE SEMISODIUM) [Concomitant]
  11. ZYPREXA (OLANZAPINE) [Concomitant]
  12. LOXAPAC (LOXAPINE SUCCINATE) (LOXAPINE SUCCINATE) [Concomitant]
  13. ANDROCUR (CYPROTERONE ACETATE) (CYPROTERONE ACETATE) [Concomitant]
  14. PARKINANE (TRIHEXYPHENIDYL HYDROCHLORIDE) (TRIHEXYPHENIDYL HYDROCHLORIDE) [Concomitant]
  15. FOSAMAX (ALENDRONATE SODIUM) (ALENDRONATE SODIUM) [Concomitant]
  16. FORLAX (MACROGOL) (MACROGOL) [Concomitant]
  17. LANSOYL (PARAFFIN, LIQUID) (PARAFFIN, LIQUID) [Concomitant]

REACTIONS (5)
  - Jaundice cholestatic [None]
  - Renal failure acute [None]
  - Interstitial lung disease [None]
  - Respiratory distress [None]
  - Lung disorder [None]
